FAERS Safety Report 6989428-3 (Version None)
Quarter: 2010Q3

REPORT INFORMATION
  Report Type: 
  Country: None (occurrence: None)
  Receive Date: 20100916
  Receipt Date: 20091127
  Transmission Date: 20110219
  Serious: Yes (Hospitalization)
  Sender: FDA-Public Use
  Company Number: FR-PFIZER INC-2009303323

PATIENT
  Sex: Male

DRUGS (7)
  1. LYRICA [Suspect]
     Indication: PAIN
     Dosage: 150 MG, 2X/DAY
  2. BACLOFEN [Suspect]
     Indication: MUSCLE SPASTICITY
     Dosage: 20 MG, 3X/DAY
     Route: 048
     Dates: start: 20090323
  3. PERSANTINE [Concomitant]
     Dosage: UNK
  4. ORACILLINE [Concomitant]
     Dosage: 1 MILLIONIU, 2X/DAY
  5. ESCITALOPRAM [Concomitant]
     Dosage: UNK
  6. PERISTALTINE [Concomitant]
     Dosage: 1 DF, 3X/DAY
  7. HEPARIN CALCIUM [Concomitant]
     Dosage: 0.25 UNK, 3X/DAY

REACTIONS (6)
  - COMA [None]
  - CONFUSIONAL STATE [None]
  - HYPERTHERMIA [None]
  - MYOCLONUS [None]
  - OVERDOSE [None]
  - SOMNOLENCE [None]
